FAERS Safety Report 8911975 (Version 1)
Quarter: 2012Q4

REPORT INFORMATION
  Report Type: 
  Country: US (occurrence: US)
  Receive Date: 20121116
  Receipt Date: 20121116
  Transmission Date: 20130627
  Serious: No
  Sender: FDA-Public Use
  Company Number: US-PFIZER INC-2012285908

PATIENT
  Sex: Female

DRUGS (1)
  1. LYRICA [Suspect]
     Dosage: UNK
     Dates: start: 20121109

REACTIONS (4)
  - Thirst [Unknown]
  - Middle insomnia [Unknown]
  - Memory impairment [Unknown]
  - Pain [Unknown]
